FAERS Safety Report 15990109 (Version 1)
Quarter: 2019Q1

REPORT INFORMATION
  Report Type: Spontaneous
  Country: ES (occurrence: ES)
  Receive Date: 20190221
  Receipt Date: 20190221
  Transmission Date: 20190418
  Serious: Yes (Other)
  Sender: FDA-Public Use
  Company Number: ES-TEVA-2019-ES-1015954

PATIENT
  Sex: Male

DRUGS (1)
  1. SILDENAFILO 100MG RATIO [Suspect]
     Active Substance: SILDENAFIL CITRATE
     Route: 048
     Dates: start: 20190216

REACTIONS (5)
  - Pyrexia [Unknown]
  - Tachycardia [Unknown]
  - Diplopia [Unknown]
  - Chills [Unknown]
  - Asthenia [Unknown]

NARRATIVE: CASE EVENT DATE: 20190217
